FAERS Safety Report 11066560 (Version 1)
Quarter: 2015Q2

REPORT INFORMATION
  Report Type: Spontaneous
  Country: US (occurrence: None)
  Receive Date: 20150416
  Receipt Date: 20150416
  Transmission Date: 20150821
  Serious: Yes (Other)
  Sender: FDA-Public Use
  Company Number: 2013P1006150

PATIENT
  Age: 51 Year
  Sex: Female
  Weight: 120.2 kg

DRUGS (9)
  1. TRILEPTAL [Concomitant]
     Active Substance: OXCARBAZEPINE
  2. PARNATE [Suspect]
     Active Substance: TRANYLCYPROMINE SULFATE
     Indication: AFFECTIVE DISORDER
     Route: 048
     Dates: start: 1996, end: 1999
  3. CELEXA [Suspect]
     Active Substance: CITALOPRAM HYDROBROMIDE
     Dates: start: 1998
  4. PARNATE [Suspect]
     Active Substance: TRANYLCYPROMINE SULFATE
     Indication: ANXIETY
     Route: 048
     Dates: start: 1996, end: 1999
  5. IBUPROFEN. [Concomitant]
     Active Substance: IBUPROFEN
  6. RETIN-A [Concomitant]
     Active Substance: TRETINOIN
  7. VALIUM [Suspect]
     Active Substance: DIAZEPAM
  8. PARNATE [Suspect]
     Active Substance: TRANYLCYPROMINE SULFATE
     Indication: DEPRESSION
     Route: 048
     Dates: start: 1996, end: 1999
  9. DOXYCYCLINE. [Concomitant]
     Active Substance: DOXYCYCLINE

REACTIONS (11)
  - Balance disorder [None]
  - Thinking abnormal [None]
  - Labelled drug-drug interaction medication error [None]
  - Back pain [None]
  - Seizure [None]
  - Weight increased [None]
  - Headache [None]
  - Back injury [None]
  - Fatigue [None]
  - Stress [None]
  - Tooth abscess [None]

NARRATIVE: CASE EVENT DATE: 1996
